FAERS Safety Report 11200451 (Version 1)
Quarter: 2015Q2

REPORT INFORMATION
  Report Type: Spontaneous
  Country: US (occurrence: None)
  Receive Date: 20150608
  Receipt Date: 20150608
  Transmission Date: 20150821
  Serious: No
  Sender: FDA-Public Use
  Company Number: 2015TUS003108

PATIENT
  Age: 43 Year
  Sex: Male
  Weight: 65.8 kg

DRUGS (4)
  1. CLOZARIL [Concomitant]
     Active Substance: CLOZAPINE
  2. AMERGE (NARATRIPTAN HYDROCHLORIDE) [Concomitant]
  3. BRINTELLIX [Suspect]
     Active Substance: VORTIOXETINE HYDROBROMIDE
     Indication: DEPRESSION
     Route: 048
     Dates: start: 20150225, end: 20150303
  4. OTHER UNKNOWN MEDS (OTHER THERAPEUTIC PRODUCTS) [Concomitant]

REACTIONS (2)
  - Sensory disturbance [None]
  - Migraine [None]
